FAERS Safety Report 7799889-8 (Version None)
Quarter: 2011Q4

REPORT INFORMATION
  Report Type: 
  Country: None (occurrence: None)
  Receive Date: 20111006
  Receipt Date: 20110927
  Transmission Date: 20120403
  Serious: Yes (Death, Other)
  Sender: FDA-Public Use
  Company Number: JP-GENZYME-THYM-1001766

PATIENT
  Sex: Male
  Weight: 66 kg

DRUGS (30)
  1. PREDNISOLONE [Concomitant]
     Indication: PREMEDICATION
     Dosage: UNK
     Dates: start: 20091111, end: 20100221
  2. MEROPENEM [Concomitant]
     Dosage: UNK
     Dates: start: 20091225, end: 20100106
  3. FOSCARNET SODIUM [Concomitant]
     Indication: INFECTION PROPHYLAXIS
     Dosage: UNK
     Dates: start: 20100223, end: 20100311
  4. THYMOGLOBULIN [Suspect]
     Indication: ACUTE GRAFT VERSUS HOST DISEASE
     Dosage: 50 MG, ONCE
     Route: 042
     Dates: start: 20100222, end: 20100222
  5. TACROLIMUS [Concomitant]
     Indication: ACUTE MYELOID LEUKAEMIA
  6. TACROLIMUS [Concomitant]
     Indication: PREMEDICATION
     Dosage: UNK
     Dates: start: 20091111, end: 20100221
  7. MEROPENEM [Concomitant]
     Indication: INFECTION PROPHYLAXIS
     Dosage: UNK
     Dates: start: 20091120, end: 20091129
  8. MICAFUNGIN SODIUM [Concomitant]
     Indication: INFECTION PROPHYLAXIS
     Dosage: UNK
     Dates: start: 20091219, end: 20100104
  9. METHYLPREDNISOLONE [Concomitant]
     Indication: PROPHYLAXIS AGAINST GRAFT VERSUS HOST DISEASE
  10. PLATELETS, CONCENTRATED [Concomitant]
     Indication: ACUTE MYELOID LEUKAEMIA
     Dosage: UNK
     Dates: start: 20091124, end: 20100209
  11. THYMOGLOBULIN [Suspect]
     Dosage: 50 MG, ONCE
     Route: 042
     Dates: start: 20100302, end: 20100302
  12. THYMOGLOBULIN [Suspect]
     Dosage: 50 MG, ONCE
     Route: 042
     Dates: start: 20100306, end: 20100306
  13. CYTARABINE [Concomitant]
     Indication: ACUTE MYELOID LEUKAEMIA
     Dosage: UNK
     Dates: start: 20091120, end: 20091121
  14. BUSULFAN [Concomitant]
     Indication: ACUTE MYELOID LEUKAEMIA
     Dosage: UNK
     Dates: start: 20091124, end: 20091125
  15. VANCOMYCIN HYCHLORIDE [Concomitant]
     Indication: INFECTION PROPHYLAXIS
     Dosage: UNK
     Dates: start: 20091130, end: 20091216
  16. RED BLOOD CELLS, CONCENTRATED [Concomitant]
     Indication: ACUTE MYELOID LEUKAEMIA
     Dosage: UNK
     Dates: start: 20091104, end: 20100205
  17. GANCICLOVIR [Concomitant]
     Indication: INFECTION PROPHYLAXIS
     Dosage: UNK
     Dates: start: 20091119, end: 20091123
  18. CEFTAZIDIME [Concomitant]
     Dosage: UNK
     Dates: start: 20091210, end: 20091216
  19. METHYLPREDNISOLONE [Concomitant]
     Indication: ACUTE MYELOID LEUKAEMIA
     Dosage: UNK
     Dates: start: 20100222, end: 20100313
  20. RED BLOOD CELLS, CONCENTRATED [Concomitant]
     Dosage: UNK
     Dates: start: 20100309, end: 20100312
  21. PLATELETS, CONCENTRATED [Concomitant]
     Dosage: UNK
     Dates: start: 20100305, end: 20100313
  22. TACROLIMUS [Concomitant]
     Indication: PROPHYLAXIS AGAINST GRAFT VERSUS HOST DISEASE
     Dosage: UNK
     Dates: start: 20100222, end: 20100313
  23. FLUDARABINE PHOSPHATE [Concomitant]
     Indication: ACUTE MYELOID LEUKAEMIA
     Dosage: UNK
     Dates: start: 20091120, end: 20091125
  24. CEFTAZIDIME [Concomitant]
     Indication: INFECTION PROPHYLAXIS
     Dosage: UNK
     Dates: start: 20091130, end: 20091209
  25. FENTANYL CITRATE [Concomitant]
     Indication: PAIN PROPHYLAXIS
     Dosage: UNK
     Dates: start: 20091210, end: 20091224
  26. CARBAZOCHROME SODIUM SULFONATE [Concomitant]
     Indication: HAEMORRHAGE PROPHYLAXIS
     Dosage: UNK
     Dates: start: 20091211, end: 20091221
  27. THYMOGLOBULIN [Suspect]
     Indication: BONE MARROW CONDITIONING REGIMEN
     Dosage: 65 MG, QD
     Route: 042
     Dates: start: 20091126, end: 20091128
  28. PREDNISOLONE [Concomitant]
     Indication: PROPHYLAXIS AGAINST GRAFT VERSUS HOST DISEASE
  29. MICAFUNGIN SODIUM [Concomitant]
     Dosage: UNK
     Dates: start: 20100225, end: 20100311
  30. ACYCLOVIR [Concomitant]
     Indication: INFECTION PROPHYLAXIS
     Dosage: UNK
     Dates: start: 20100310, end: 20100312

REACTIONS (3)
  - GRAFT VERSUS HOST DISEASE [None]
  - MULTI-ORGAN FAILURE [None]
  - CYSTITIS HAEMORRHAGIC [None]
